FAERS Safety Report 7074252-6 (Version None)
Quarter: 2010Q4

REPORT INFORMATION
  Report Type: 
  Country: None (occurrence: None)
  Receive Date: 20101029
  Receipt Date: 20101021
  Transmission Date: 20110411
  Serious: Yes (Hospitalization)
  Sender: FDA-Public Use
  Company Number: BG-ROCHE-736236

PATIENT
  Age: 59 Year
  Sex: Female
  Weight: 75 kg

DRUGS (3)
  1. CAPECITABINE [Suspect]
     Indication: BREAST CANCER
     Route: 048
     Dates: start: 20090415, end: 20100921
  2. ZOMETA [Concomitant]
     Dates: start: 20080101
  3. LEVOTHYROXINE SODIUM [Concomitant]
     Indication: THYROIDITIS
     Dates: start: 20100701

REACTIONS (1)
  - HAEMATURIA [None]
